FAERS Safety Report 9990204 (Version 1)
Quarter: 2013Q4

REPORT INFORMATION
  Report Type: Spontaneous
  Country: US (occurrence: None)
  Receive Date: 20131121
  Receipt Date: 20131121
  Transmission Date: 20140711
  Serious: Yes (Hospitalization)
  Sender: FDA-Public Use
  Company Number: US-000838

PATIENT
  Age: 61 Year
  Sex: Male

DRUGS (6)
  1. GATTEX [Suspect]
     Indication: SHORT-BOWEL SYNDROME
     Dosage: 0.43 ML QD, STREN/VOLUM: 0.43 ML/FREQU: DAILY SUBCUTANEOUS
     Route: 058
     Dates: start: 20130612, end: 20131026
  2. SOLUTIONS FOR PARENTERAL NUTRITION [Concomitant]
  3. METOPROLOL [Concomitant]
  4. IMODIUM [Concomitant]
  5. IBUPROFEN [Concomitant]
  6. OMEPRAZOLE [Concomitant]

REACTIONS (1)
  - Intestinal obstruction [None]
